FAERS Safety Report 9816595 (Version 1)
Quarter: 2014Q1

REPORT INFORMATION
  Report Type: Spontaneous
  Country: US (occurrence: US)
  Receive Date: 20140114
  Receipt Date: 20140114
  Transmission Date: 20141002
  Serious: Yes (Death)
  Sender: FDA-Public Use
  Company Number: US-PFIZER INC-2014007246

PATIENT
  Age: 49 Year
  Sex: Male

DRUGS (8)
  1. AMLODIPINE BESILATE [Suspect]
     Dosage: UNK
  2. BENZONATATE [Suspect]
     Dosage: UNK
  3. COCAINE [Suspect]
     Dosage: UNK
  4. TRAZODONE [Suspect]
     Dosage: UNK
  5. RISPERIDONE [Suspect]
     Dosage: UNK
  6. BENZTROPINE [Suspect]
     Dosage: UNK
  7. LISINOPRIL [Suspect]
     Dosage: UNK
  8. CHLORTHALIDONE [Suspect]
     Dosage: UNK

REACTIONS (1)
  - Completed suicide [Fatal]
